FAERS Safety Report 5140409-4 (Version None)
Quarter: 2006Q4

REPORT INFORMATION
  Report Type: 
  Country: None (occurrence: None)
  Receive Date: 20061024
  Receipt Date: 20061002
  Transmission Date: 20070319
  Serious: Yes (Hospitalization, Other)
  Sender: FDA-Public Use
  Company Number: FR200609003057

PATIENT
  Age: 44 Year
  Sex: Male
  Weight: 96 kg

DRUGS (7)
  1. PROZAC [Suspect]
     Indication: DEPRESSION
     Dosage: 20 MG DAILY (1/D) ORAL
     Route: 048
     Dates: start: 19990101, end: 20060713
  2. CORTANCYL/FRA/(PREDNISONE) [Concomitant]
  3. ELAVIL [Concomitant]
  4. TERCIAN (CYAMEMAZINE) [Concomitant]
  5. LANSOPRAZOLE [Concomitant]
  6. PANTOPRAZOLE SODIUM [Concomitant]
  7. TEGRETOL [Concomitant]

REACTIONS (5)
  - CHOLELITHIASIS [None]
  - CYTOLYTIC HEPATITIS [None]
  - HEPATITIS [None]
  - HEPATITIS CHOLESTATIC [None]
  - JUVENILE ARTHRITIS [None]
